FAERS Safety Report 15023480 (Version 1)
Quarter: 2018Q2

REPORT INFORMATION
  Report Type: Spontaneous
  Country: US (occurrence: US)
  Receive Date: 20180602
  Receipt Date: 20180602
  Transmission Date: 20180711
  Serious: No
  Sender: FDA-Public Use
  Company Number: None

PATIENT
  Age: 50 Year
  Sex: Female
  Weight: 93.15 kg

DRUGS (6)
  1. CLARITIN [Concomitant]
     Active Substance: LORATADINE
  2. ALBUTEROL. [Concomitant]
     Active Substance: ALBUTEROL
  3. SINGULAIR [Concomitant]
     Active Substance: MONTELUKAST SODIUM
  4. ATORVASTATIN CALCIUM. [Suspect]
     Active Substance: ATORVASTATIN CALCIUM
     Indication: BLOOD CHOLESTEROL
     Dosage: ?          QUANTITY:1 DF DOSAGE FORM;?
     Route: 048
     Dates: start: 20180425, end: 20180602
  5. FLUTICASONE. [Concomitant]
     Active Substance: FLUTICASONE
  6. ESTROGEN [Concomitant]
     Active Substance: ESTROGENS

REACTIONS (1)
  - Alopecia [None]

NARRATIVE: CASE EVENT DATE: 20180601
